FAERS Safety Report 7301536-6 (Version None)
Quarter: 2011Q1

REPORT INFORMATION
  Report Type: 
  Country: None (occurrence: None)
  Receive Date: 20110218
  Receipt Date: 20101217
  Transmission Date: 20110831
  Serious: No
  Sender: FDA-Public Use
  Company Number: US-BRISTOL-MYERS SQUIBB COMPANY-15449549

PATIENT

DRUGS (2)
  1. KENALOG-10 [Suspect]
     Indication: INFLAMMATION
     Dosage: 1 DF=5 CC OF KENALOG 10
     Route: 030
  2. KENALOG-10 [Suspect]
     Indication: PAIN
     Dosage: 1 DF=5 CC OF KENALOG 10
     Route: 030

REACTIONS (3)
  - HYPOAESTHESIA ORAL [None]
  - BLOOD PRESSURE INCREASED [None]
  - DIZZINESS [None]
